FAERS Safety Report 5672550-1 (Version None)
Quarter: 2008Q2

REPORT INFORMATION
  Report Type: 
  Country: None (occurrence: None)
  Receive Date: 20080219
  Receipt Date: 20080102
  Transmission Date: 20081010
  Serious: No
  Sender: FDA-Public Use
  Company Number: TPA2008A00010

PATIENT
  Age: 78 Year
  Sex: Female
  Weight: 62.5964 kg

DRUGS (3)
  1. ROZEREM [Suspect]
     Indication: INSOMNIA
     Dosage: 8 MG, HS, PER ORAL
     Route: 048
     Dates: start: 20071231
  2. NAMENDA [Concomitant]
  3. EXELON (RIVASTIGMINE TARTRATE) (POULTICE OR PATCH) [Concomitant]

REACTIONS (1)
  - INITIAL INSOMNIA [None]
